FAERS Safety Report 16459080 (Version 1)
Quarter: 2019Q2

REPORT INFORMATION
  Report Type: Spontaneous
  Country: ES (occurrence: ES)
  Receive Date: 20190620
  Receipt Date: 20190620
  Transmission Date: 20190711
  Serious: Yes (Other)
  Sender: FDA-Public Use
  Company Number: ES-009507513-1906ESP006925

PATIENT
  Age: 16 Year
  Sex: Male

DRUGS (9)
  1. EZETIMIBE. [Suspect]
     Active Substance: EZETIMIBE
     Indication: PRODUCT USED FOR UNKNOWN INDICATION
     Dosage: 10 MG, QD
  2. LOMITAPIDE [Suspect]
     Active Substance: LOMITAPIDE MESYLATE
     Indication: TYPE IIA HYPERLIPIDAEMIA
     Dosage: 30 MG, UNK
     Route: 048
     Dates: start: 20181108
  3. LOMITAPIDE [Suspect]
     Active Substance: LOMITAPIDE MESYLATE
     Dosage: 30 MILLIGRAM
     Route: 048
     Dates: start: 20181108, end: 20181110
  4. CANESTEN [Suspect]
     Active Substance: CLOTRIMAZOLE
     Indication: FUNGAL INFECTION
     Dosage: UNK UNK, QD
     Dates: start: 20181013, end: 20181027
  5. ROSUVASTATIN. [Suspect]
     Active Substance: ROSUVASTATIN
     Indication: PRODUCT USED FOR UNKNOWN INDICATION
     Dosage: 5 MG, QOD
     Route: 048
     Dates: end: 20181019
  6. LOMITAPIDE [Suspect]
     Active Substance: LOMITAPIDE MESYLATE
     Dosage: 60 MILLIGRAM
     Route: 048
     Dates: start: 20181214
  7. LOMITAPIDE [Suspect]
     Active Substance: LOMITAPIDE MESYLATE
     Dosage: 60 MILLIGRAM
     Route: 048
     Dates: end: 20181025
  8. LOMITAPIDE [Suspect]
     Active Substance: LOMITAPIDE MESYLATE
     Dosage: 40 MILLIGRAM
     Route: 048
     Dates: start: 20181026
  9. LOMITAPIDE [Suspect]
     Active Substance: LOMITAPIDE MESYLATE
     Dosage: 40 MILLIGRAM
     Route: 048
     Dates: start: 20181130

REACTIONS (6)
  - Product administered to patient of inappropriate age [Unknown]
  - Potentiating drug interaction [Unknown]
  - Liver function test increased [Recovered/Resolved]
  - Fungal infection [Unknown]
  - Blood test abnormal [Unknown]
  - Therapy cessation [Recovered/Resolved]

NARRATIVE: CASE EVENT DATE: 201809
